FAERS Safety Report 9451091 (Version 3)
Quarter: 2013Q4

REPORT INFORMATION
  Report Type: Spontaneous
  Country: US (occurrence: US)
  Receive Date: 20130809
  Receipt Date: 20131019
  Transmission Date: 20140711
  Serious: No
  Sender: FDA-Public Use
  Company Number: US-B.I. PHARMACEUTICALS,INC./RIDGEFIELD-2013-BI-23041PF

PATIENT
  Sex: Female

DRUGS (16)
  1. SPIRIVA [Suspect]
     Dosage: 1 DRY INHALATION DAILY
     Route: 055
  2. LYRICA [Suspect]
     Dosage: 900 MG
     Route: 048
  3. ADVAIR DISKUS [Concomitant]
     Dosage: 500-50MCG/DOSE DISK WITH DEVICE ,1 PUFF
  4. ALBUTEROL SULFATE [Concomitant]
     Indication: BLOOD URIC ACID ABNORMAL
     Dosage: 2.5MG/3ML(0.083%) SOLUTION FOR NEBULIZATION
     Route: 048
  5. CLARITIN [Concomitant]
     Dosage: 10 MG
     Route: 048
  6. FENOFIBRATE [Concomitant]
     Indication: BLOOD TRIGLYCERIDES ABNORMAL
     Dosage: 160 MG
     Route: 048
  7. HYDROCODONE-ACETAMINOPHEN [Concomitant]
     Indication: PAIN
     Dosage: 10.65 MG
     Route: 048
  8. METHOCARBAMOL [Concomitant]
     Indication: MUSCLE SPASMS
     Dosage: 3000 MG
     Route: 048
  9. MICARDS HCT 80 [Concomitant]
     Dosage: 12.5 MG
     Route: 048
  10. NAPROXEN [Concomitant]
     Dosage: 1000 MG
     Route: 048
  11. NASACORT [Concomitant]
     Dosage: 55 MG
  12. PAXIL [Concomitant]
     Dosage: 40 MG
     Route: 048
  13. PRAVASTALIN [Concomitant]
     Indication: LIPIDS ABNORMAL
     Dosage: 40 MG
     Route: 048
  14. PREMARIN [Concomitant]
     Dosage: 1.25 MG
     Route: 048
  15. PROPRANOLOL [Concomitant]
     Dosage: 40 MG
     Route: 048
  16. SINGULAIR [Concomitant]
     Route: 048

REACTIONS (3)
  - Foot fracture [Unknown]
  - Neuralgia [Unknown]
  - Pain in extremity [Unknown]
